FAERS Safety Report 9710909 (Version 1)
Quarter: 2013Q4

REPORT INFORMATION
  Report Type: Spontaneous
  Country: US (occurrence: US)
  Receive Date: 20131126
  Receipt Date: 20131126
  Transmission Date: 20140711
  Serious: No
  Sender: FDA-Public Use
  Company Number: US-BRISTOL-MYERS SQUIBB COMPANY-19030014

PATIENT
  Age: 62 Year
  Sex: Female
  Weight: 82.08 kg

DRUGS (3)
  1. BYETTA [Suspect]
     Dosage: LAST THERAPY DATE ON JUN13
  2. LEVEMIR [Concomitant]
  3. GLIMEPIRIDE [Concomitant]

REACTIONS (4)
  - Malaise [Unknown]
  - Diarrhoea [Unknown]
  - Vomiting [Unknown]
  - Nasopharyngitis [Unknown]
